FAERS Safety Report 8246972-9 (Version None)
Quarter: 2012Q1

REPORT INFORMATION
  Report Type: 
  Country: None (occurrence: None)
  Receive Date: 20120330
  Receipt Date: 20120322
  Transmission Date: 20120608
  Serious: Yes (Death)
  Sender: FDA-Public Use
  Company Number: US-ROXANE LABORATORIES, INC.-2012-EU-01678GD

PATIENT

DRUGS (12)
  1. PROMETHAZINE [Suspect]
  2. SPIRONOLACTONE [Suspect]
  3. METHADONE HCL [Suspect]
  4. CLONAZEPAM [Suspect]
  5. ELETRIPTAN [Suspect]
  6. MECLIZINE [Suspect]
  7. SIBUTRAMINE HYDROCHLORIDE MONOHYDRATE [Suspect]
  8. ACETAMINOPHEN [Suspect]
  9. HYDROCHLOROTHIAZIDE [Suspect]
  10. PHENDIMETRAZINE FUMARATE [Suspect]
  11. METHADONE HCL [Suspect]
     Indication: DRUG WITHDRAWAL MAINTENANCE THERAPY
     Dosage: 30 MG
  12. DIPHENHYDRAMINE HCL [Suspect]

REACTIONS (2)
  - OVERDOSE [None]
  - TOXICITY TO VARIOUS AGENTS [None]
